FAERS Safety Report 4686205-3 (Version None)
Quarter: 2005Q2

REPORT INFORMATION
  Report Type: 
  Country: None (occurrence: None)
  Receive Date: 20050606
  Receipt Date: 20050525
  Transmission Date: 20051028
  Serious: Yes (Other)
  Sender: FDA-Public Use
  Company Number: US_0505118013

PATIENT
  Age: 92 Year
  Sex: Male
  Weight: 79 kg

DRUGS (10)
  1. CYMBALTA [Suspect]
     Indication: NEUROPATHY PERIPHERAL
     Dates: start: 20050406, end: 20050413
  2. COUMADIN [Concomitant]
  3. DIGOXIN [Concomitant]
  4. DILTIAZEM [Concomitant]
  5. CORTISPORIN [Concomitant]
  6. ZEPHREX [Concomitant]
  7. GLUCOSAMINE SULFATE W/CHONODROITIN [Concomitant]
  8. VITAMIN E [Concomitant]
  9. MINERAL OIL [Concomitant]
  10. TITRALAC [Concomitant]

REACTIONS (7)
  - BLOOD CHLORIDE DECREASED [None]
  - FALL [None]
  - HYPONATRAEMIA [None]
  - HYPOVOLAEMIA [None]
  - INTERNATIONAL NORMALISED RATIO DECREASED [None]
  - LABORATORY TEST ABNORMAL [None]
  - ORTHOSTATIC HYPOTENSION [None]
